FAERS Safety Report 14991298 (Version 2)
Quarter: 2018Q2

REPORT INFORMATION
  Report Type: Report from Study
  Country: IN (occurrence: IN)
  Receive Date: 20180608
  Receipt Date: 20180615
  Transmission Date: 20180711
  Serious: Yes (Death, Other)
  Sender: FDA-Public Use
  Company Number: IN-UCBSA-2018025134

PATIENT
  Age: 15 Year
  Sex: Male
  Weight: 64 kg

DRUGS (2)
  1. BRIVARACETAM EP [Suspect]
     Active Substance: BRIVARACETAM
     Indication: EPILEPSY
     Dosage: 50 MG, 2X/DAY (BID)
     Route: 048
     Dates: start: 201804
  2. BRIVARACETAM EP [Suspect]
     Active Substance: BRIVARACETAM
     Dosage: UNK
     Dates: start: 20180602, end: 20180603

REACTIONS (4)
  - Haemorrhage subcutaneous [Unknown]
  - Seizure [Not Recovered/Not Resolved]
  - Coma [Fatal]
  - Intentional product misuse [Unknown]

NARRATIVE: CASE EVENT DATE: 2018
